FAERS Safety Report 12291230 (Version 2)
Quarter: 2016Q2

REPORT INFORMATION
  Report Type: Spontaneous
  Country: AR (occurrence: AR)
  Receive Date: 20160421
  Receipt Date: 20160506
  Transmission Date: 20160815
  Serious: No
  Sender: FDA-Public Use
  Company Number: AR-PFIZER INC-2016212540

PATIENT
  Age: 59 Year
  Sex: Male

DRUGS (2)
  1. INLYTA [Suspect]
     Active Substance: AXITINIB
     Indication: RENAL CANCER
     Dosage: 1 DF (5 MG) AND 2 DF (10 MG) ALTERATE DAYS
     Dates: start: 20150108
  2. INLYTA [Suspect]
     Active Substance: AXITINIB
     Dosage: 1 DF (5 MG) AND 2 DF (10 MG) ALTERATE DAYS

REACTIONS (2)
  - Disease progression [Unknown]
  - Renal cancer [Unknown]

NARRATIVE: CASE EVENT DATE: 201603
